FAERS Safety Report 16615142 (Version 4)
Quarter: 2020Q2

REPORT INFORMATION
  Report Type: Spontaneous
  Country: JP (occurrence: JP)
  Receive Date: 20190723
  Receipt Date: 20200630
  Transmission Date: 20200713
  Serious: Yes (Hospitalization)
  Sender: FDA-Public Use
  Company Number: JP-009507513-1907JPN013115

PATIENT
  Age: 82 Year
  Sex: Male
  Weight: 46.7 kg

DRUGS (24)
  1. LANSOPRAZOLE. [Concomitant]
     Active Substance: LANSOPRAZOLE
     Dosage: 15 MG, QD
     Route: 048
  2. NICORANDIL [Concomitant]
     Active Substance: NICORANDIL
     Indication: ANGINA PECTORIS
     Dosage: 5 MG, BID
     Route: 048
  3. NICORANDIL [Concomitant]
     Active Substance: NICORANDIL
     Dosage: 5 MG, BID
     Route: 048
  4. ARGAMATE GRANULES [Concomitant]
     Dosage: 25 G, QD
     Route: 048
  5. FUROSEMIDE. [Concomitant]
     Active Substance: FUROSEMIDE
     Dosage: 5 MG, QD
     Route: 048
  6. LANSOPRAZOLE. [Concomitant]
     Active Substance: LANSOPRAZOLE
     Dosage: 15 MG, QD
     Route: 048
  7. BISOPROLOL FUMARATE. [Concomitant]
     Active Substance: BISOPROLOL FUMARATE
     Dosage: 1.25 MG, QD
     Route: 048
  8. AMLODIPINE BESYLATE. [Concomitant]
     Active Substance: AMLODIPINE BESYLATE
     Indication: HYPERTENSION
     Dosage: 2.5 MG, QD
     Route: 048
  9. LANSOPRAZOLE. [Concomitant]
     Active Substance: LANSOPRAZOLE
     Indication: HYPERTENSION
     Dosage: 15 MG, QD
     Route: 048
  10. NICORANDIL [Concomitant]
     Active Substance: NICORANDIL
     Dosage: 5 MG, BID
     Route: 048
  11. MAGNESIUM OXIDE. [Concomitant]
     Active Substance: MAGNESIUM OXIDE
     Dosage: 500 MG, TID
     Route: 048
  12. FERROUS CITRATE [Concomitant]
     Active Substance: FERROUS CITRATE
     Dosage: 50 MG, BID
     Route: 048
  13. ESOMEPRAZOLE MAGNESIUM. [Concomitant]
     Active Substance: ESOMEPRAZOLE MAGNESIUM
     Dosage: 10 MG, QD
     Route: 048
  14. MINOMYCIN [Concomitant]
     Active Substance: MINOCYCLINE HYDROCHLORIDE
     Indication: INFECTION
     Dosage: 100 MG, BID
     Route: 048
     Dates: start: 20190125
  15. BAYASPIRIN [Concomitant]
     Active Substance: ASPIRIN
     Dosage: 100 MG, QD
     Route: 048
  16. ENALAPRIL MALEATE. [Concomitant]
     Active Substance: ENALAPRIL MALEATE
     Dosage: 5 MG, QD
     Route: 048
  17. AMLODIPINE BESYLATE. [Concomitant]
     Active Substance: AMLODIPINE BESYLATE
     Dosage: 2.5 MG, QD
     Route: 048
  18. LACB R [Concomitant]
     Indication: DYSBIOSIS
     Dosage: 1 G, TID
     Route: 048
  19. AMLODIPINE BESYLATE. [Concomitant]
     Active Substance: AMLODIPINE BESYLATE
     Dosage: 2.5 MG, QD
     Route: 048
  20. TEDIZOLID PHOSPHATE. [Suspect]
     Active Substance: TEDIZOLID PHOSPHATE
     Indication: STAPHYLOCOCCAL INFECTION
     Dosage: 200 MG, QD
     Route: 048
     Dates: start: 20190105, end: 20190124
  21. TEDIZOLID PHOSPHATE. [Suspect]
     Active Substance: TEDIZOLID PHOSPHATE
     Indication: STAPHYLOCOCCAL INFECTION
     Dosage: 200 MG, QD
     Route: 042
     Dates: start: 20181221, end: 20190104
  22. BISOPROLOL FUMARATE. [Concomitant]
     Active Substance: BISOPROLOL FUMARATE
     Dosage: 1.25 MG, QD
     Route: 048
  23. CLOPIDOGREL [Concomitant]
     Active Substance: CLOPIDOGREL BISULFATE
     Dosage: 75 MG, QD
     Route: 048
  24. RAMELTEON [Concomitant]
     Active Substance: RAMELTEON
     Dosage: 8 MG, QD
     Route: 048

REACTIONS (2)
  - Platelet count decreased [Recovered/Resolved]
  - Thrombocytopenia [Recovered/Resolved]

NARRATIVE: CASE EVENT DATE: 20190119
